FAERS Safety Report 8141705-9 (Version None)
Quarter: 2012Q1

REPORT INFORMATION
  Report Type: 
  Country: None (occurrence: None)
  Receive Date: 20120216
  Receipt Date: 20120206
  Transmission Date: 20120608
  Serious: Yes (Other)
  Sender: FDA-Public Use
  Company Number: BR-US-EMD SERONO, INC.-7112005

PATIENT
  Sex: Female

DRUGS (8)
  1. REBIF [Suspect]
     Indication: RELAPSING-REMITTING MULTIPLE SCLEROSIS
     Dates: start: 20110906
  2. CHLOMIPRAMINE (CLOMIPRAMINE) [Concomitant]
     Indication: PRODUCT USED FOR UNKNOWN INDICATION
  3. LORAX [Concomitant]
     Indication: PRODUCT USED FOR UNKNOWN INDICATION
  4. TIROX [Concomitant]
     Indication: PRODUCT USED FOR UNKNOWN INDICATION
  5. RISPERIDONE [Concomitant]
     Indication: PRODUCT USED FOR UNKNOWN INDICATION
  6. EXODUS [Concomitant]
     Indication: PRODUCT USED FOR UNKNOWN INDICATION
  7. DYPIRONE (DIPYRONE) [Concomitant]
     Indication: PRODUCT USED FOR UNKNOWN INDICATION
  8. LAMIRIN [Concomitant]
     Indication: PRODUCT USED FOR UNKNOWN INDICATION

REACTIONS (1)
  - LABYRINTHITIS [None]
